FAERS Safety Report 7643886-X (Version None)
Quarter: 2011Q3

REPORT INFORMATION
  Report Type: 
  Country: None (occurrence: None)
  Receive Date: 20110729
  Receipt Date: 20110111
  Transmission Date: 20111222
  Serious: No
  Sender: FDA-Public Use
  Company Number: US-GLAXOSMITHKLINE-A0904977A

PATIENT
  Age: 45 Year
  Sex: Male

DRUGS (4)
  1. IMITREX [Concomitant]
     Dates: start: 20110113
  2. LEVITRA [Concomitant]
  3. WELLBUTRIN [Concomitant]
     Indication: MIGRAINE
     Dosage: 100MG AS REQUIRED
     Route: 048
  4. IMITREX [Suspect]
     Indication: MIGRAINE
     Dosage: 100MG AS REQUIRED
     Route: 048

REACTIONS (2)
  - DRUG INEFFECTIVE [None]
  - PRODUCT QUALITY ISSUE [None]
